FAERS Safety Report 6357818 (Version 3)
Quarter: 2017Q1

REPORT INFORMATION
  Report Type: Spontaneous
  Country: JP (occurrence: JP)
  Receive Date: 20070716
  Receipt Date: 20170214
  Transmission Date: 20170429
  Serious: Yes (Disabling, Other)
  Sender: FDA-Public Use
  Company Number: JP-BRISTOL-MYERS SQUIBB COMPANY-13843784

PATIENT
  Age: 75 Year
  Sex: Male

DRUGS (4)
  1. DECADRON [Suspect]
     Active Substance: DEXAMETHASONE
     Indication: NAUSEA
     Dosage: 20 MG, QWK
     Route: 041
     Dates: start: 20061109, end: 20061212
  2. TAXOL [Suspect]
     Active Substance: PACLITAXEL
     Indication: LUNG NEOPLASM MALIGNANT
     Dosage: 120 MG, QWK
     Route: 041
     Dates: start: 20061109, end: 20061212
  3. PARAPLATIN [Suspect]
     Active Substance: CARBOPLATIN
     Indication: PRODUCT USED FOR UNKNOWN INDICATION
     Dosage: 462 MG, QMO
     Route: 041
     Dates: start: 20061109, end: 20061212
  4. HORMONE THERAPY [Concomitant]
     Active Substance: UNSPECIFIED INGREDIENT
     Indication: PRODUCT USED FOR UNKNOWN INDICATION
     Route: 065

REACTIONS (1)
  - Blindness unilateral [Unknown]

NARRATIVE: CASE EVENT DATE: 20061205
